FAERS Safety Report 7483725-3 (Version None)
Quarter: 2011Q2

REPORT INFORMATION
  Report Type: 
  Country: None (occurrence: None)
  Receive Date: 20110517
  Receipt Date: 20110504
  Transmission Date: 20111010
  Serious: Yes (Other)
  Sender: FDA-Public Use
  Company Number: PHHY2011BR37838

PATIENT
  Sex: Female

DRUGS (4)
  1. DIAZEPAM [Suspect]
     Indication: FEELING OF RELAXATION
     Dosage: 10 MG, UNK
  2. CAPTOPRIL [Suspect]
     Dosage: UNK
     Dates: start: 20110504
  3. FORMOTEROL FUMARATE [Suspect]
     Indication: ASTHMA
     Dosage: 1 TIME DAILY
  4. CAPTOPRIL [Suspect]
     Indication: HYPERTENSION
     Dosage: 25 MG, UNK

REACTIONS (3)
  - BLOOD PRESSURE INCREASED [None]
  - DYSPNOEA [None]
  - SOMNOLENCE [None]
